FAERS Safety Report 16128525 (Version 1)
Quarter: 2019Q1

REPORT INFORMATION
  Report Type: Spontaneous
  Country: US (occurrence: US)
  Receive Date: 20190328
  Receipt Date: 20190328
  Transmission Date: 20190418
  Serious: Yes (Hospitalization, Disabling)
  Sender: FDA-Public Use
  Company Number: US-JNJFOC-20190338119

PATIENT
  Age: 53 Year
  Sex: Female

DRUGS (1)
  1. INVOKANA [Suspect]
     Active Substance: CANAGLIFLOZIN
     Indication: TYPE 2 DIABETES MELLITUS
     Route: 048

REACTIONS (7)
  - Skin ulcer [Unknown]
  - Toe amputation [Unknown]
  - Leg amputation [Unknown]
  - Osteomyelitis [Unknown]
  - Extremity contracture [Unknown]
  - Cellulitis [Unknown]
  - Periarthritis [Unknown]

NARRATIVE: CASE EVENT DATE: 20150902
